FAERS Safety Report 6399992-3 (Version None)
Quarter: 2009Q4

REPORT INFORMATION
  Report Type: 
  Country: None (occurrence: None)
  Receive Date: 20091014
  Receipt Date: 20091005
  Transmission Date: 20100525
  Serious: Yes (Hospitalization)
  Sender: FDA-Public Use
  Company Number: US-ELI_LILLY_AND_COMPANY-US200910001028

PATIENT
  Sex: Male
  Weight: 165.53 kg

DRUGS (14)
  1. BYETTA [Suspect]
     Indication: TYPE 2 DIABETES MELLITUS
     Dosage: 5 UG, 2/D
     Route: 058
     Dates: start: 20070101, end: 20070101
  2. BYETTA [Suspect]
     Dosage: 10 UG, 2/D
     Route: 058
     Dates: start: 20070101, end: 20070101
  3. BYETTA [Suspect]
     Dosage: 5 UG, 2/D
     Route: 058
     Dates: start: 20070101, end: 20091003
  4. BYETTA [Suspect]
     Dosage: 10 UG, 2/D
     Route: 058
     Dates: start: 20091004
  5. METFORMIN HYDROCHLORIDE [Concomitant]
     Indication: TYPE 2 DIABETES MELLITUS
     Dosage: 750 MG, 2/D
     Route: 048
  6. GLIMEPIRIDE [Concomitant]
     Indication: TYPE 2 DIABETES MELLITUS
     Dosage: 2 MG, 2/D
     Route: 048
  7. LISINOPRIL HYDROCHLORTHIAZID [Concomitant]
     Dosage: UNK, DAILY (1/D)
  8. CARDIZEM CD [Concomitant]
     Dosage: 360 MG, DAILY (1/D)
     Route: 048
     Dates: start: 20060101
  9. PAROXETINE [Concomitant]
     Dosage: 20 MG, DAILY (1/D)
     Route: 048
     Dates: start: 20060101
  10. CRESTOR [Concomitant]
     Dosage: 10 MG, DAILY (1/D)
     Route: 048
  11. WARFARIN SODIUM [Concomitant]
     Dosage: 5 MG, UNKNOWN
  12. FUROSEMIDE [Concomitant]
     Dosage: 40 MG, 2/D
     Route: 048
  13. METOPROLOL [Concomitant]
     Dosage: 50 MG, 4/D
     Route: 048
     Dates: start: 20060101
  14. POTASSION [Concomitant]
     Dosage: 40 MEQ, DAILY (1/D)
     Route: 048

REACTIONS (11)
  - ATRIAL FIBRILLATION [None]
  - BLOOD GLUCOSE INCREASED [None]
  - CARDIAC FAILURE CONGESTIVE [None]
  - DIZZINESS [None]
  - DRY MOUTH [None]
  - DYSPNOEA [None]
  - FATIGUE [None]
  - GLYCOSYLATED HAEMOGLOBIN INCREASED [None]
  - HEART RATE INCREASED [None]
  - MALAISE [None]
  - PAIN [None]
